FAERS Safety Report 16883626 (Version 1)
Quarter: 2019Q4

REPORT INFORMATION
  Report Type: Spontaneous
  Country: US (occurrence: US)
  Receive Date: 20191004
  Receipt Date: 20191004
  Transmission Date: 20200122
  Serious: Yes (Other)
  Sender: FDA-Public Use
  Company Number: US-SA-2019SA268279

PATIENT
  Sex: Female

DRUGS (1)
  1. ZANTAC 75 [Suspect]
     Active Substance: RANITIDINE HYDROCHLORIDE
     Indication: CHOLELITHIASIS
     Dosage: UNK UNK, UNK
     Route: 065

REACTIONS (4)
  - Large intestine perforation [Unknown]
  - Drug effective for unapproved indication [Unknown]
  - Gastric perforation [Unknown]
  - Breast mass [Unknown]
